FAERS Safety Report 13655537 (Version 2)
Quarter: 2017Q3

REPORT INFORMATION
  Report Type: Spontaneous
  Country: US (occurrence: US)
  Receive Date: 20170615
  Receipt Date: 20170813
  Transmission Date: 20171127
  Serious: Yes (Other)
  Sender: FDA-Public Use
  Company Number: US-GLAXOSMITHKLINE-US2017088103

PATIENT
  Age: 61 Year
  Sex: Female

DRUGS (6)
  1. XANAX [Concomitant]
     Active Substance: ALPRAZOLAM
  2. ZANTAC 75 [Suspect]
     Active Substance: RANITIDINE HYDROCHLORIDE
     Indication: GASTROOESOPHAGEAL REFLUX DISEASE
     Dosage: 150 MG, BID
     Route: 048
     Dates: start: 20170601
  3. TIMOPTIC [Concomitant]
     Active Substance: TIMOLOL MALEATE
  4. ZANTAC 75 [Suspect]
     Active Substance: RANITIDINE HYDROCHLORIDE
     Dosage: 300 MG, QOD
  5. MEDROL [Concomitant]
     Active Substance: METHYLPREDNISOLONE
  6. ZANTAC [Suspect]
     Active Substance: RANITIDINE HYDROCHLORIDE
     Indication: GASTROOESOPHAGEAL REFLUX DISEASE
     Dosage: 150 MG, BID
     Route: 048
     Dates: start: 1981

REACTIONS (16)
  - Retinopexy [Unknown]
  - Cataract operation [Unknown]
  - Intentional underdose [Unknown]
  - Retinal detachment [Recovered/Resolved]
  - Abdominal pain upper [Recovering/Resolving]
  - Dysgeusia [Recovering/Resolving]
  - Intentional product misuse [Unknown]
  - Intraocular pressure increased [Unknown]
  - Malaise [Recovered/Resolved]
  - Gastrointestinal pain [Unknown]
  - Pain [Recovered/Resolved]
  - Product substitution issue [Unknown]
  - Cataract [Recovered/Resolved]
  - Nausea [Recovered/Resolved]
  - Product availability issue [Unknown]
  - Drug ineffective [Unknown]

NARRATIVE: CASE EVENT DATE: 201403
